FAERS Safety Report 20323052 (Version 1)
Quarter: 2022Q1

REPORT INFORMATION
  Report Type: Spontaneous
  Country: US (occurrence: US)
  Receive Date: 20220111
  Receipt Date: 20220111
  Transmission Date: 20220423
  Serious: Yes (Other)
  Sender: FDA-Public Use
  Company Number: US-LUPIN PHARMACEUTICALS INC.-2021-26756

PATIENT
  Age: 51 Year
  Sex: Female

DRUGS (2)
  1. FENOFIBRATE [Suspect]
     Active Substance: FENOFIBRATE
     Indication: Product used for unknown indication
     Dosage: UNK
     Route: 065
  2. LYRICA [Concomitant]
     Active Substance: PREGABALIN
     Indication: Carpal tunnel syndrome
     Dosage: UNK ((CERVICAL EPIDURAL, TRIGGER POINT, FACET))
     Route: 008

REACTIONS (1)
  - Myotonia [Unknown]
